FAERS Safety Report 5854035-2 (Version None)
Quarter: 2008Q3

REPORT INFORMATION
  Report Type: 
  Country: None (occurrence: None)
  Receive Date: 20080822
  Receipt Date: 20080820
  Transmission Date: 20090109
  Serious: Yes (Disabling, Other)
  Sender: FDA-Public Use
  Company Number: US-MERCK-0808USA02825

PATIENT
  Age: 70 Year
  Sex: Female

DRUGS (8)
  1. FOSAMAX [Suspect]
     Indication: OSTEOPOROSIS
     Route: 048
     Dates: start: 19950201, end: 19961001
  2. FOSAMAX [Suspect]
     Route: 048
     Dates: start: 19980501, end: 20010101
  3. FOSAMAX [Suspect]
     Route: 048
     Dates: start: 20010101
  4. ESTROGENS (UNSPECIFIED) [Suspect]
     Route: 065
     Dates: end: 20020101
  5. EVISTA [Concomitant]
     Route: 065
     Dates: start: 20020101
  6. MEVACOR [Concomitant]
     Route: 048
  7. PROZAC [Concomitant]
     Route: 065
  8. VASOTEC [Concomitant]
     Route: 048
     Dates: end: 19990101

REACTIONS (3)
  - FALL [None]
  - FEMUR FRACTURE [None]
  - PAIN IN EXTREMITY [None]
